FAERS Safety Report 16768736 (Version 1)
Quarter: 2019Q3

REPORT INFORMATION
  Report Type: Spontaneous
  Country: US (occurrence: US)
  Receive Date: 20190903
  Receipt Date: 20190903
  Transmission Date: 20191005
  Serious: No
  Sender: FDA-Public Use
  Company Number: US-SA-2019SA241812

PATIENT
  Age: 68 Year
  Sex: Female

DRUGS (3)
  1. KEVZARA [Suspect]
     Active Substance: SARILUMAB
     Indication: RHEUMATOID ARTHRITIS
     Dosage: 200 MG, QOW
     Route: 058
     Dates: start: 20190805
  2. HUMIRA [Suspect]
     Active Substance: ADALIMUMAB
  3. ENBREL [Suspect]
     Active Substance: ETANERCEPT

REACTIONS (10)
  - Injection site pruritus [Unknown]
  - Oral discomfort [Unknown]
  - Injection site erythema [Unknown]
  - Injection site mass [Unknown]
  - Oral pain [Unknown]
  - Condition aggravated [Unknown]
  - Injection site warmth [Unknown]
  - Feeding disorder [Unknown]
  - Injection site pain [Unknown]
  - Drug ineffective [Unknown]

NARRATIVE: CASE EVENT DATE: 201908
